FAERS Safety Report 8716711 (Version 2)
Quarter: 2013Q1

REPORT INFORMATION
  Report Type: Spontaneous
  Country: US (occurrence: US)
  Receive Date: 20120810
  Receipt Date: 20130214
  Transmission Date: 20140127
  Serious: No
  Sender: FDA-Public Use
  Company Number: US-PFIZER INC-2012192504

PATIENT
  Age: 65 Year
  Sex: Female
  Weight: 83.9 kg

DRUGS (4)
  1. XALKORI [Suspect]
     Indication: LUNG NEOPLASM MALIGNANT
     Dosage: 250 MG, 2X/DAY
     Dates: start: 201110, end: 20120501
  2. XALKORI [Suspect]
     Dosage: UNK
  3. TEMAZEPAM [Concomitant]
     Indication: SLEEP DISORDER
     Dosage: 30 MG, DAILY
  4. CITALOPRAM HYDROBROMIDE [Concomitant]
     Indication: ANTIDEPRESSANT THERAPY
     Dosage: 10 MG, DAILY

REACTIONS (1)
  - Herpes zoster [Recovering/Resolving]
